FAERS Safety Report 12546550 (Version 1)
Quarter: 2016Q3

REPORT INFORMATION
  Report Type: Report from Study
  Country: US (occurrence: US)
  Receive Date: 20160711
  Receipt Date: 20160711
  Transmission Date: 20161109
  Serious: No
  Sender: FDA-Public Use
  Company Number: GXBR2016US002127

PATIENT
  Sex: Male

DRUGS (3)
  1. OMNITROPE [Suspect]
     Active Substance: SOMATROPIN
     Indication: GROWTH HORMONE DEFICIENCY
     Dosage: 2.1 MG, QD
     Route: 065
     Dates: start: 201605
  2. CELEXA [Concomitant]
     Active Substance: CITALOPRAM HYDROBROMIDE
     Indication: ANXIETY
     Dosage: 30 MG, QD
     Route: 048
  3. RITALIN [Concomitant]
     Active Substance: METHYLPHENIDATE HYDROCHLORIDE
     Indication: ATTENTION DEFICIT/HYPERACTIVITY DISORDER
     Dosage: 30 MG, UNK
     Route: 048

REACTIONS (4)
  - Disturbance in attention [Not Recovered/Not Resolved]
  - Repetitive speech [Not Recovered/Not Resolved]
  - Speech disorder [Not Recovered/Not Resolved]
  - Depressed mood [Not Recovered/Not Resolved]
